FAERS Safety Report 8054455-4 (Version None)
Quarter: 2012Q1

REPORT INFORMATION
  Report Type: 
  Country: None (occurrence: None)
  Receive Date: 20120118
  Receipt Date: 20120110
  Transmission Date: 20120608
  Serious: Yes (Hospitalization, Other)
  Sender: FDA-Public Use
  Company Number: US-ASTRAZENECA-2011SE73658

PATIENT
  Age: 84 Year
  Sex: Female

DRUGS (2)
  1. NEXIUM [Suspect]
     Route: 048
  2. HEART MEDICINE [Concomitant]

REACTIONS (7)
  - BRAIN NEOPLASM [None]
  - CARDIAC DISORDER [None]
  - LIVER DISORDER [None]
  - RENAL MASS [None]
  - GASTROOESOPHAGEAL REFLUX DISEASE [None]
  - HYPERSENSITIVITY [None]
  - INTERVERTEBRAL DISC COMPRESSION [None]
